FAERS Safety Report 7890032-3 (Version None)
Quarter: 2011Q4

REPORT INFORMATION
  Report Type: 
  Country: None (occurrence: None)
  Receive Date: 20111103
  Receipt Date: 20111027
  Transmission Date: 20120403
  Serious: Yes (Hospitalization)
  Sender: FDA-Public Use
  Company Number: PHHO2009US01989

PATIENT
  Sex: Female
  Weight: 129 kg

DRUGS (6)
  1. MILK OF MAGNESIA TAB [Concomitant]
  2. ALDACTONE [Concomitant]
  3. TASIGNA [Suspect]
     Indication: CHRONIC MYELOID LEUKAEMIA
     Dosage: 400 MG, BID
     Route: 048
     Dates: start: 20080305, end: 20090105
  4. ACTOS [Concomitant]
     Indication: DIABETES MELLITUS
     Dosage: UNK
  5. GLIMEPIRIDE [Concomitant]
  6. PROTONIX [Concomitant]

REACTIONS (12)
  - CHEST DISCOMFORT [None]
  - GASTROINTESTINAL HAEMORRHAGE [None]
  - DUODENAL ULCER [None]
  - ANXIETY [None]
  - NON-CARDIAC CHEST PAIN [None]
  - GASTROOESOPHAGEAL REFLUX DISEASE [None]
  - RENAL FAILURE CHRONIC [None]
  - ABDOMINAL PAIN LOWER [None]
  - PYREXIA [None]
  - ABDOMINAL PAIN [None]
  - DYSPNOEA [None]
  - URINARY TRACT INFECTION [None]
